FAERS Safety Report 9179977 (Version 1)
Quarter: 2013Q1

REPORT INFORMATION
  Report Type: Spontaneous
  Country: US (occurrence: US)
  Receive Date: 20130321
  Receipt Date: 20130321
  Transmission Date: 20140127
  Serious: No
  Sender: FDA-Public Use
  Company Number: US-009507513-1303USA009165

PATIENT
  Age: 51 Year
  Sex: Female

DRUGS (5)
  1. SAPHRIS [Suspect]
     Indication: BIPOLAR DISORDER
     Dosage: UNK
     Route: 060
  2. SAPHRIS [Suspect]
     Dosage: UNK
     Route: 060
  3. BUSPAR [Concomitant]
  4. VISTARIL [Concomitant]
  5. PROZAC [Concomitant]

REACTIONS (7)
  - Mania [Unknown]
  - Feeling abnormal [Unknown]
  - Irritability [Unknown]
  - Energy increased [Unknown]
  - Euphoric mood [Unknown]
  - Distractibility [Unknown]
  - Insomnia [Unknown]
